FAERS Safety Report 8416530-1 (Version None)
Quarter: 2012Q2

REPORT INFORMATION
  Report Type: 
  Country: None (occurrence: None)
  Receive Date: 20120606
  Receipt Date: 20120601
  Transmission Date: 20120825
  Serious: Yes (Other)
  Sender: FDA-Public Use
  Company Number: US-GLAXOSMITHKLINE-A0979846A

PATIENT
  Age: 22 Year
  Sex: Male

DRUGS (5)
  1. POTIGA [Suspect]
     Indication: PARTIAL SEIZURES
     Dosage: 100MG THREE TIMES PER DAY
     Route: 050
     Dates: start: 20120523
  2. GABITRIL [Concomitant]
  3. DEPAKOTE [Concomitant]
  4. KEPPRA [Concomitant]
  5. VIMPAT [Concomitant]

REACTIONS (2)
  - CONVULSION [None]
  - WRONG TECHNIQUE IN DRUG USAGE PROCESS [None]
